FAERS Safety Report 8596896-2 (Version None)
Quarter: 2012Q3

REPORT INFORMATION
  Report Type: 
  Country: None (occurrence: None)
  Receive Date: 20120815
  Receipt Date: 20120730
  Transmission Date: 20120928
  Serious: Yes (Hospitalization)
  Sender: FDA-Public Use
  Company Number: US-VALEANT-2012VX003627

PATIENT
  Age: 64 Year
  Sex: Female

DRUGS (4)
  1. ZINC OXIDE [Concomitant]
     Route: 065
  2. FLUOROURACIL [Suspect]
     Indication: SQUAMOUS CELL CARCINOMA
     Dosage: DOSE UNIT:40
     Route: 061
  3. FLUOROURACIL [Suspect]
     Indication: ACTINIC KERATOSIS
     Dosage: DOSE UNIT:40
     Route: 061
  4. WRAP ZINC OXIDE [Concomitant]
     Route: 065

REACTIONS (13)
  - FATIGUE [None]
  - NAUSEA [None]
  - PRURITUS [None]
  - URINE COLOUR ABNORMAL [None]
  - TRANSAMINASES INCREASED [None]
  - INFLAMMATION [None]
  - DIARRHOEA [None]
  - RASH ERYTHEMATOUS [None]
  - CHILLS [None]
  - VOMITING [None]
  - PAIN [None]
  - DYSPNOEA [None]
  - PYREXIA [None]
